FAERS Safety Report 13037906 (Version 2)
Quarter: 2016Q4

REPORT INFORMATION
  Report Type: Other
  Country: US (occurrence: US)
  Receive Date: 20161218
  Receipt Date: 20161221
  Transmission Date: 20170207
  Serious: Yes (Other)
  Sender: FDA-Public Use
  Company Number: US-DEXPHARM-20162381

PATIENT
  Age: 66 Year
  Sex: Male

DRUGS (5)
  1. BACITRACIN. [Concomitant]
     Active Substance: BACITRACIN
     Indication: ANTIBIOTIC THERAPY
     Route: 061
  2. PETROLEUM [Concomitant]
     Active Substance: PETROLATUM
     Indication: PROMOTION OF WOUND HEALING
     Route: 061
  3. K-Y JELLY [Suspect]
     Active Substance: CHLORHEXIDINE GLUCONATE
     Indication: PROMOTION OF WOUND HEALING
     Route: 061
  4. KELO-COTE [Concomitant]
     Indication: PROMOTION OF WOUND HEALING
     Dosage: TWICE A DAY
     Route: 061
  5. CEPHALEXIN. [Concomitant]
     Active Substance: CEPHALEXIN
     Indication: ANTIBIOTIC THERAPY
     Route: 048

REACTIONS (1)
  - Granuloma [Recovered/Resolved]
